FAERS Safety Report 9162531 (Version 2)
Quarter: 2013Q2

REPORT INFORMATION
  Report Type: Spontaneous
  Country: DE (occurrence: DE)
  Receive Date: 20130314
  Receipt Date: 20130506
  Transmission Date: 20140414
  Serious: Yes (Other)
  Sender: FDA-Public Use
  Company Number: DE-ELI_LILLY_AND_COMPANY-DE201303001299

PATIENT
  Age: 50 Year
  Sex: Female

DRUGS (5)
  1. ZYPREXA [Suspect]
     Indication: BIPOLAR DISORDER
     Dosage: 10 MG, UNK
     Route: 048
     Dates: start: 2000, end: 200308
  2. ZYPREXA [Suspect]
     Dosage: 10 MG, UNK
     Dates: start: 2006
  3. ABILIFY [Concomitant]
  4. TIMONIL [Concomitant]
  5. L-THYROXIN [Concomitant]
     Indication: THYROIDECTOMY
     Dosage: 125 DF, UNK

REACTIONS (4)
  - Antiphospholipid syndrome [Unknown]
  - Protein S deficiency [Unknown]
  - Factor V Leiden mutation [Unknown]
  - Thrombophlebitis [Unknown]
